FAERS Safety Report 16103295 (Version 2)
Quarter: 2019Q2

REPORT INFORMATION
  Report Type: Report from Study
  Country: None (occurrence: US)
  Receive Date: 20190322
  Receipt Date: 20190409
  Transmission Date: 20190711
  Serious: Yes (Hospitalization, Other)
  Sender: FDA-Public Use
  Company Number: US-ABBVIE-19K-163-2711577-00

PATIENT
  Age: 48 Year
  Sex: Male
  Weight: 106.69 kg

DRUGS (2)
  1. LISINOPRIL. [Concomitant]
     Active Substance: LISINOPRIL
     Indication: HYPERTENSION
  2. MAVYRET [Suspect]
     Active Substance: GLECAPREVIR\PIBRENTASVIR
     Indication: CHRONIC HEPATITIS C
     Route: 048
     Dates: start: 20190114

REACTIONS (6)
  - Herpes zoster [Recovering/Resolving]
  - Ear infection [Not Recovered/Not Resolved]
  - Hypertension [Recovered/Resolved]
  - Chest pain [Recovering/Resolving]
  - Varices oesophageal [Not Recovered/Not Resolved]
  - Type 2 diabetes mellitus [Recovered/Resolved]

NARRATIVE: CASE EVENT DATE: 20190212
